FAERS Safety Report 11844279 (Version 1)
Quarter: 2015Q4

REPORT INFORMATION
  Report Type: Spontaneous
  Country: US (occurrence: None)
  Receive Date: 20151216
  Receipt Date: 20151216
  Transmission Date: 20160305
  Serious: No
  Sender: FDA-Public Use
  Company Number: None

PATIENT
  Age: 53 Year
  Sex: Female

DRUGS (1)
  1. BETASERON [Suspect]
     Active Substance: INTERFERON BETA-1B
     Dosage: 1ML QOD  SUBQ

REACTIONS (4)
  - Paraesthesia [None]
  - Arthralgia [None]
  - Pain in extremity [None]
  - Muscle spasms [None]

NARRATIVE: CASE EVENT DATE: 20151211
